FAERS Safety Report 8522159 (Version 2)
Quarter: 2014Q2

REPORT INFORMATION
  Report Type: Spontaneous
  Country: FR (occurrence: FR)
  Receive Date: 20120419
  Receipt Date: 20140613
  Transmission Date: 20141212
  Serious: Yes (Congenital Anomaly)
  Sender: FDA-Public Use
  Company Number: FR-TEVA-333219ISR

PATIENT
  Age: 27 Year
  Sex: Female

DRUGS (2)
  1. COPAXONE [Suspect]
     Indication: MULTIPLE SCLEROSIS
     Dates: start: 20110209, end: 20110815
  2. COPAXONE [Suspect]
     Dates: start: 201202

REACTIONS (3)
  - Abortion spontaneous [Unknown]
  - Infection [Unknown]
  - Foetal death [Unknown]
